FAERS Safety Report 24069033 (Version 2)
Quarter: 2024Q3

REPORT INFORMATION
  Report Type: Spontaneous
  Country: BD (occurrence: BD)
  Receive Date: 20240710
  Receipt Date: 20240710
  Transmission Date: 20241017
  Serious: No
  Sender: ROCHE
  Company Number: BD-ROCHE-3572162

PATIENT
  Age: 60 Year
  Sex: Female

DRUGS (1)
  1. VABYSMO [Suspect]
     Active Substance: FARICIMAB\FARICIMAB-SVOA
     Indication: Diabetic retinal oedema
     Dosage: 6MG/0.05ML, WITH 30 DAYS INTERVAL
     Route: 065

REACTIONS (1)
  - Uveitis [Unknown]
